FAERS Safety Report 8486690-5 (Version None)
Quarter: 2012Q3

REPORT INFORMATION
  Report Type: 
  Country: None (occurrence: None)
  Receive Date: 20120704
  Receipt Date: 20120622
  Transmission Date: 20120928
  Serious: Yes (Other)
  Sender: FDA-Public Use
  Company Number: CO-AMGEN-COLSP2012039667

PATIENT
  Age: 58 Year
  Sex: Female

DRUGS (2)
  1. ENBREL [Suspect]
     Indication: RHEUMATOID ARTHRITIS
     Dosage: 50 MG, WEEKLY
     Route: 058
     Dates: start: 20101101, end: 20111101
  2. OMEPRAZOLE [Concomitant]
     Indication: GASTRITIS
     Dosage: 1 TABLET PER DAY

REACTIONS (6)
  - RHEUMATOID ARTHRITIS [None]
  - DIZZINESS [None]
  - DIARRHOEA [None]
  - LIVER DISORDER [None]
  - WHEELCHAIR USER [None]
  - HEADACHE [None]
